FAERS Safety Report 17870598 (Version 10)
Quarter: 2024Q3

REPORT INFORMATION
  Report Type: Spontaneous
  Country: US (occurrence: US)
  Receive Date: 20200608
  Receipt Date: 20240801
  Transmission Date: 20241017
  Serious: No
  Sender: PFIZER
  Company Number: US-PFIZER INC-2020222309

PATIENT
  Age: 83 Year
  Sex: Female
  Weight: 80.74 kg

DRUGS (14)
  1. IBRANCE [Suspect]
     Active Substance: PALBOCICLIB
     Indication: Breast cancer female
     Dosage: 125 MG
     Dates: start: 20190101, end: 2019
  2. IBRANCE [Suspect]
     Active Substance: PALBOCICLIB
     Indication: Breast cancer metastatic
     Dosage: 125 MG
     Dates: start: 20190827
  3. IBRANCE [Suspect]
     Active Substance: PALBOCICLIB
     Dosage: 125 MG
     Dates: start: 20200512
  4. IBRANCE [Suspect]
     Active Substance: PALBOCICLIB
     Dosage: 100 MG
  5. IBRANCE [Suspect]
     Active Substance: PALBOCICLIB
     Dosage: 75 MG
  6. IBRANCE [Suspect]
     Active Substance: PALBOCICLIB
     Dosage: UNK
  7. IBRANCE [Suspect]
     Active Substance: PALBOCICLIB
     Dosage: UNK
  8. IBRANCE [Suspect]
     Active Substance: PALBOCICLIB
     Dosage: ONCE A DAY FOR 21 DAYS AND THEN 7 DAYS OFF
     Route: 048
  9. IBRANCE [Suspect]
     Active Substance: PALBOCICLIB
     Dosage: 100 MG, 1X/DAY
     Route: 048
  10. IBRANCE [Suspect]
     Active Substance: PALBOCICLIB
     Dosage: 125 MG
  11. SERTRALINE [Concomitant]
     Active Substance: SERTRALINE HYDROCHLORIDE
     Dosage: 100 MG
  12. SERTRALINE [Concomitant]
     Active Substance: SERTRALINE HYDROCHLORIDE
     Dosage: 50 MG
  13. LOVASTATIN [Concomitant]
     Active Substance: LOVASTATIN
  14. VITAMINS NOS [Concomitant]
     Active Substance: VITAMINS

REACTIONS (13)
  - Inappropriate schedule of product administration [Unknown]
  - Dry skin [Unknown]
  - Glossitis [Unknown]
  - Stomatitis [Unknown]
  - Cheilitis [Unknown]
  - Tongue pruritus [Unknown]
  - Oral pruritus [Unknown]
  - Lip pruritus [Unknown]
  - Tongue disorder [Unknown]
  - Alopecia [Not Recovered/Not Resolved]
  - Off label use [Unknown]
  - Product dose omission in error [Unknown]
  - Expired product administered [Unknown]

NARRATIVE: CASE EVENT DATE: 20240101
